FAERS Safety Report 8343575-2 (Version None)
Quarter: 2012Q2

REPORT INFORMATION
  Report Type: 
  Country: None (occurrence: None)
  Receive Date: 20120508
  Receipt Date: 20100526
  Transmission Date: 20120825
  Serious: No
  Sender: FDA-Public Use
  Company Number: US-TEVA-2010002931

PATIENT
  Age: 62 Year
  Sex: Male
  Weight: 101.7 kg

DRUGS (2)
  1. RITUXAN [Concomitant]
     Indication: B-CELL LYMPHOMA
     Dates: start: 20100524
  2. TREANDA [Suspect]
     Indication: B-CELL LYMPHOMA
     Route: 042

REACTIONS (3)
  - RASH MACULAR [None]
  - THROAT TIGHTNESS [None]
  - ARTHRALGIA [None]
